FAERS Safety Report 12430024 (Version 1)
Quarter: 2016Q2

REPORT INFORMATION
  Report Type: Report from Study
  Country: RO (occurrence: RO)
  Receive Date: 20160602
  Receipt Date: 20160602
  Transmission Date: 20160815
  Serious: Yes (Hospitalization)
  Sender: FDA-Public Use
  Company Number: RO-KADMON PHARMACEUTICALS, LLC-KAD201605-001774

PATIENT
  Age: 69 Year
  Sex: Female

DRUGS (15)
  1. VIEKIRAX [Suspect]
     Active Substance: OMBITASVIR\PARITAPREVIR\RITONAVIR
     Indication: HEPATITIS C
     Dosage: FILM-COATED TABLET
     Route: 048
     Dates: start: 20160217, end: 20160510
  2. DIAPREL [Concomitant]
     Active Substance: GLICLAZIDE
     Indication: DIABETES MELLITUS
     Route: 048
     Dates: start: 200801
  3. URSOFALK [Concomitant]
     Active Substance: URSODIOL
  4. VIEKIRAX [Suspect]
     Active Substance: OMBITASVIR\PARITAPREVIR\RITONAVIR
     Indication: HEPATIC CIRRHOSIS
  5. EXVIERA [Suspect]
     Active Substance: DASABUVIR
     Indication: HEPATIC CIRRHOSIS
  6. DIUREX [Concomitant]
     Active Substance: AMILORIDE HYDROCHLORIDE\HYDROCHLOROTHIAZIDE
     Indication: HYPERTENSION
     Route: 048
     Dates: start: 20160417
  7. FUROSEMIDE. [Concomitant]
     Active Substance: FUROSEMIDE
     Dates: end: 20160501
  8. ATACAND [Concomitant]
     Active Substance: CANDESARTAN CILEXETIL
  9. RIBAVIRIN. [Suspect]
     Active Substance: RIBAVIRIN
     Indication: HEPATITIS C
     Dosage: FILM-COATED TABLET
     Route: 048
     Dates: start: 20160217
  10. EXVIERA [Suspect]
     Active Substance: DASABUVIR
     Indication: HEPATITIS C
     Dosage: FILM-COATED TABLET
     Route: 048
     Dates: start: 20160217, end: 20160510
  11. ATACAND [Concomitant]
     Active Substance: CANDESARTAN CILEXETIL
     Indication: HYPERTENSION
     Dosage: TABLET
     Route: 048
     Dates: start: 20160217
  12. DIAPREL MR 60 MG TABLET [Concomitant]
  13. DIUREX [Concomitant]
     Active Substance: AMILORIDE HYDROCHLORIDE\HYDROCHLOROTHIAZIDE
     Route: 048
  14. ATACAND [Concomitant]
     Active Substance: CANDESARTAN CILEXETIL
  15. RIBAVIRIN. [Suspect]
     Active Substance: RIBAVIRIN
     Indication: HEPATIC CIRRHOSIS
     Dosage: FILM-COATED TABLET
     Route: 048
     Dates: start: 20160417

REACTIONS (17)
  - Asthenia [Unknown]
  - Hepatic failure [Unknown]
  - Respiratory failure [Unknown]
  - Epistaxis [Recovered/Resolved]
  - Amnesia [Unknown]
  - Drug ineffective [Recovered/Resolved]
  - Haemoglobin decreased [Unknown]
  - Calcium deficiency [Not Recovered/Not Resolved]
  - Blood pressure increased [Recovered/Resolved]
  - Asthenia [Unknown]
  - Labile hypertension [Unknown]
  - Bone pain [Unknown]
  - Burn oesophageal [Unknown]
  - Fatigue [Not Recovered/Not Resolved]
  - Dizziness [Unknown]
  - Vomiting [Unknown]
  - Emotional disorder [Unknown]

NARRATIVE: CASE EVENT DATE: 20160217
